FAERS Safety Report 8629538 (Version 3)
Quarter: 2013Q4

REPORT INFORMATION
  Report Type: Spontaneous
  Country: US (occurrence: US)
  Receive Date: 20120622
  Receipt Date: 20131015
  Transmission Date: 20140711
  Serious: No
  Sender: FDA-Public Use
  Company Number: US-ASTRAZENECA-2012SE35603

PATIENT
  Age: 53 Year
  Sex: Male
  Weight: 57.6 kg

DRUGS (3)
  1. NEXIUM [Suspect]
     Dosage: TWICE A DAY, AFTER BREAKFAST
     Route: 048
     Dates: start: 200905, end: 201112
  2. NEXIUM [Suspect]
     Route: 048
     Dates: start: 20111206
  3. PROTONIX [Concomitant]

REACTIONS (2)
  - Osteoporosis [Unknown]
  - Multiple fractures [Unknown]
